FAERS Safety Report 18142570 (Version 2)
Quarter: 2020Q3

REPORT INFORMATION
  Report Type: Spontaneous
  Country: US (occurrence: US)
  Receive Date: 20200813
  Receipt Date: 20200916
  Transmission Date: 20201103
  Serious: Yes (Other)
  Sender: FDA-Public Use
  Company Number: US-CLOVIS ONCOLOGY-CLO-2020-001455

PATIENT
  Sex: Female

DRUGS (3)
  1. RUBRACA [Suspect]
     Active Substance: RUCAPARIB CAMSYLATE
     Dosage: 500 MG, BID
     Route: 048
     Dates: start: 202008
  2. RUBRACA [Suspect]
     Active Substance: RUCAPARIB CAMSYLATE
     Indication: OVARIAN CANCER
     Dosage: 600 MG, BID
     Route: 048
     Dates: start: 20200610, end: 202008
  3. RUBRACA [Suspect]
     Active Substance: RUCAPARIB CAMSYLATE
     Dosage: 600 MG, BID
     Route: 048
     Dates: start: 202005, end: 202008

REACTIONS (15)
  - Diarrhoea [Unknown]
  - Asthenia [Recovering/Resolving]
  - Photosensitivity reaction [Unknown]
  - Diabetes mellitus [Unknown]
  - Myalgia [Unknown]
  - Fatigue [Unknown]
  - Depressed mood [Unknown]
  - Decreased appetite [Recovering/Resolving]
  - Blood creatinine increased [Unknown]
  - Mobility decreased [Unknown]
  - Nausea [Recovering/Resolving]
  - Vomiting [Recovering/Resolving]
  - Blood urine present [Unknown]
  - Flank pain [Unknown]
  - Mood swings [Unknown]

NARRATIVE: CASE EVENT DATE: 2020
